FAERS Safety Report 4414403-2 (Version None)
Quarter: 2004Q3

REPORT INFORMATION
  Report Type: 
  Country: None (occurrence: None)
  Receive Date: 20040701
  Receipt Date: 20031105
  Transmission Date: 20050211
  Serious: Yes (Other)
  Sender: FDA-Public Use
  Company Number: VISP-PR-0311S-0310(0)

PATIENT
  Age: 85 Year
  Sex: Female

DRUGS (2)
  1. VISIPAQUE [Suspect]
     Indication: CARDIAC PACEMAKER INSERTION
     Dosage: 25 ML, SINGLE DOSE, I.V.
     Route: 042
     Dates: start: 20031105, end: 20031105
  2. DIPHENHYDRAMINE (BENADRYL) [Concomitant]

REACTIONS (1)
  - ANAPHYLACTIC REACTION [None]
